FAERS Safety Report 7568282-5 (Version None)
Quarter: 2011Q2

REPORT INFORMATION
  Report Type: 
  Country: None (occurrence: None)
  Receive Date: 20110623
  Receipt Date: 20110609
  Transmission Date: 20111010
  Serious: Yes (Other)
  Sender: FDA-Public Use
  Company Number: CA-JNJFOC-20100508901

PATIENT
  Sex: Female
  Weight: 53 kg

DRUGS (3)
  1. REMICADE [Suspect]
     Route: 042
     Dates: start: 20080101
  2. REMICADE [Suspect]
     Dosage: RECEIVED 27 INFUSIONS
     Route: 042
     Dates: start: 20100427
  3. REMICADE [Suspect]
     Indication: CROHN'S DISEASE
     Route: 042
     Dates: start: 20100622

REACTIONS (2)
  - DRUG EXPOSURE DURING PREGNANCY [None]
  - UTERINE DILATION AND CURETTAGE [None]
